FAERS Safety Report 7070630-X (Version None)
Quarter: 2010Q4

REPORT INFORMATION
  Report Type: 
  Country: None (occurrence: None)
  Receive Date: 20101029
  Receipt Date: 20101020
  Transmission Date: 20110411
  Serious: Yes (Death)
  Sender: FDA-Public Use
  Company Number: US-PFIZER INC-2010133427

PATIENT
  Sex: Female

DRUGS (1)
  1. REVATIO [Suspect]
     Indication: COR PULMONALE CHRONIC
     Dosage: 20 MG

REACTIONS (1)
  - DEATH [None]
